FAERS Safety Report 24291719 (Version 2)
Quarter: 2024Q3

REPORT INFORMATION
  Report Type: Spontaneous
  Country: CN (occurrence: CN)
  Receive Date: 20240906
  Receipt Date: 20240911
  Transmission Date: 20241016
  Serious: Yes (Hospitalization, Other)
  Sender: PFIZER
  Company Number: CN-PFIZER INC-PV202400112650

PATIENT
  Age: 17 Year
  Sex: Male
  Weight: 50 kg

DRUGS (4)
  1. CYTARABINE [Suspect]
     Active Substance: CYTARABINE
     Indication: Chemotherapy
     Dosage: 3 G, 2X/DAY
     Route: 041
     Dates: start: 20240826, end: 20240827
  2. METHOTREXATE SODIUM [Suspect]
     Active Substance: METHOTREXATE SODIUM
     Indication: Chemotherapy
     Dosage: 1540.000 MG, 1X/DAY
     Route: 041
     Dates: start: 20240823, end: 20240823
  3. DEXTROSE [Concomitant]
     Active Substance: DEXTROSE\DEXTROSE MONOHYDRATE
     Indication: Vehicle solution use
     Dosage: 500.000 ML, 1X/DAY
     Route: 041
     Dates: start: 20240823, end: 20240823
  4. SODIUM CHLORIDE [Concomitant]
     Active Substance: SODIUM CHLORIDE
     Indication: Vehicle solution use
     Dosage: 500.000 ML, 2X/DAY
     Route: 041
     Dates: start: 20240826, end: 20240827

REACTIONS (4)
  - Myelosuppression [Unknown]
  - Condition aggravated [Unknown]
  - White blood cell count decreased [Unknown]
  - Neutrophil count decreased [Unknown]

NARRATIVE: CASE EVENT DATE: 20240828
